FAERS Safety Report 15863368 (Version 2)
Quarter: 2019Q1

REPORT INFORMATION
  Report Type: Spontaneous
  Country: JP (occurrence: JP)
  Receive Date: 20190124
  Receipt Date: 20190328
  Transmission Date: 20190417
  Serious: Yes (Hospitalization)
  Sender: FDA-Public Use
  Company Number: JP-ALLERGAN-1902867US

PATIENT
  Sex: Male
  Weight: 36 kg

DRUGS (3)
  1. MEMANTINE HCL - BP [Suspect]
     Active Substance: MEMANTINE
     Indication: DEMENTIA ALZHEIMER^S TYPE
     Dosage: UNK
     Route: 048
     Dates: start: 201708, end: 201709
  2. TANDOSPIRONE CITRATE [Concomitant]
     Active Substance: TANDOSPIRONE CITRATE
     Indication: PRODUCT USED FOR UNKNOWN INDICATION
     Dosage: UNK
     Route: 065
     Dates: start: 201502
  3. MEMANTINE HCL - BP [Suspect]
     Active Substance: MEMANTINE
     Dosage: 10 MG, QD
     Route: 065
     Dates: start: 201502, end: 201708

REACTIONS (8)
  - Abnormal behaviour [Unknown]
  - Subdural hygroma [Not Recovered/Not Resolved]
  - Aspiration [Unknown]
  - Weight decreased [Unknown]
  - Poverty of speech [Unknown]
  - Hyporeflexia [Unknown]
  - Fall [Unknown]
  - Hypophagia [Not Recovered/Not Resolved]
